FAERS Safety Report 9938485 (Version 2)
Quarter: 2014Q1

REPORT INFORMATION
  Report Type: Report from Study
  Country: US (occurrence: US)
  Receive Date: 20140303
  Receipt Date: 20140303
  Transmission Date: 20141002
  Serious: Yes (Other)
  Sender: FDA-Public Use
  Company Number: US-ABBVIE-12P-163-1020864-00

PATIENT
  Sex: Female

DRUGS (5)
  1. HUMIRA PEN [Suspect]
     Indication: ARTHRITIS
  2. METHOTREXATE [Concomitant]
     Indication: ARTHRITIS
  3. FOLIC ACID [Concomitant]
     Indication: ARTHRITIS
  4. NAPROXEN [Concomitant]
     Indication: ARTHRITIS
  5. GABAPENTIN [Concomitant]
     Indication: ARTHRITIS

REACTIONS (3)
  - Thyroid cancer [Unknown]
  - Anxiety [Unknown]
  - Migraine [Unknown]
